FAERS Safety Report 11385969 (Version 1)
Quarter: 2015Q3

REPORT INFORMATION
  Report Type: Spontaneous
  Country: PL (occurrence: PL)
  Receive Date: 20150817
  Receipt Date: 20150817
  Transmission Date: 20151125
  Serious: Yes (Other)
  Sender: FDA-Public Use
  Company Number: PL-ACCORD-032997

PATIENT
  Age: 38 Year
  Sex: Male

DRUGS (5)
  1. CARBAMAZEPINE. [Interacting]
     Active Substance: CARBAMAZEPINE
     Indication: EPILEPSY
     Dosage: INITIALLY RECEIVED AT UNKNOWN DOSE, THEN RECEIVED AT 2X600 MG.
  2. LACOSAMIDE [Interacting]
     Active Substance: LACOSAMIDE
     Indication: EPILEPSY
     Dosage: STARTED AT DOSE OF 2X50 MG, THEN INCREASED TO 50MG/WK, 200MG/DAY, AND THEN 400MG/DAY FOR 1-2 MONTHS
  3. RISPERIDONE. [Concomitant]
     Active Substance: RISPERIDONE
  4. LEVETIRACETAM. [Suspect]
     Active Substance: LEVETIRACETAM
     Indication: EPILEPSY
     Dosage: RESTARTED AT 2X500 MG, FOUR TIMES
  5. VALPROATE [Concomitant]
     Active Substance: VALPROATE SODIUM

REACTIONS (4)
  - Vision blurred [Recovered/Resolved]
  - Dizziness [Recovered/Resolved]
  - Psychotic disorder [Unknown]
  - Drug interaction [Unknown]
